FAERS Safety Report 12816403 (Version 1)
Quarter: 2016Q4

REPORT INFORMATION
  Report Type: Spontaneous
  Country: AU (occurrence: AU)
  Receive Date: 20161006
  Receipt Date: 20161006
  Transmission Date: 20170207
  Serious: No
  Sender: FDA-Public Use
  Company Number: AU-NOVEN PHARMACEUTICALS, INC.-AU2016002008

PATIENT

DRUGS (1)
  1. ESTRADIOL/NORETHISTERONE ACETATE [Suspect]
     Active Substance: ESTRADIOL\NORETHINDRONE ACETATE
     Indication: PRODUCT USED FOR UNKNOWN INDICATION
     Dosage: 50/140, 2/WK (ON AN OFF SINCE MARCH)
     Route: 065
     Dates: start: 201603, end: 201607

REACTIONS (2)
  - Breast swelling [Unknown]
  - Rash [Unknown]

NARRATIVE: CASE EVENT DATE: 20160717
